FAERS Safety Report 5187331-5 (Version None)
Quarter: 2006Q4

REPORT INFORMATION
  Report Type: 
  Country: None (occurrence: None)
  Receive Date: 20061213
  Receipt Date: 20061127
  Transmission Date: 20070319
  Serious: Yes (Other)
  Sender: FDA-Public Use
  Company Number: US-2006-037053

PATIENT
  Age: 39 Year
  Sex: Female

DRUGS (2)
  1. BETASERON [Suspect]
     Indication: MULTIPLE SCLEROSIS
     Dosage: 8 MIU, EVERY 2D, UNK
     Dates: start: 20060523
  2. HUMANTE [Concomitant]

REACTIONS (2)
  - BLINDNESS UNILATERAL [None]
  - HEPATITIS C POSITIVE [None]
